FAERS Safety Report 7102452-5 (Version None)
Quarter: 2010Q4

REPORT INFORMATION
  Report Type: 
  Country: None (occurrence: None)
  Receive Date: 20101115
  Receipt Date: 20101109
  Transmission Date: 20110411
  Serious: No
  Sender: FDA-Public Use
  Company Number: US-BIOGENIDEC-2010BI039208

PATIENT
  Sex: Female

DRUGS (1)
  1. AVONEX [Suspect]
     Indication: MULTIPLE SCLEROSIS
     Route: 030

REACTIONS (10)
  - ASTHENIA [None]
  - BONE PAIN [None]
  - FACIAL BONES FRACTURE [None]
  - FALL [None]
  - HEADACHE [None]
  - HYPERAESTHESIA [None]
  - LOSS OF CONTROL OF LEGS [None]
  - MALAISE [None]
  - MOBILITY DECREASED [None]
  - MUSCULOSKELETAL DISORDER [None]
